FAERS Safety Report 24855258 (Version 1)
Quarter: 2025Q1

REPORT INFORMATION
  Report Type: Spontaneous
  Country: US (occurrence: US)
  Receive Date: 20250117
  Receipt Date: 20250117
  Transmission Date: 20250409
  Serious: No
  Sender: CURRAX PHARMACEUTICALS
  Company Number: US-CURRAX PHARMACEUTICALS-2021-013543

PATIENT
  Age: 43 Year
  Sex: Female

DRUGS (1)
  1. CONTRAVE [Suspect]
     Active Substance: BUPROPION HYDROCHLORIDE\NALTREXONE HYDROCHLORIDE
     Indication: Weight control
     Route: 048
     Dates: start: 20210626, end: 20210628

REACTIONS (5)
  - Somnolence [Unknown]
  - Palpitations [Unknown]
  - Feeling jittery [Unknown]
  - Lethargy [Unknown]
  - Asthenia [Unknown]

NARRATIVE: CASE EVENT DATE: 20210601
